FAERS Safety Report 7346742-X (Version None)
Quarter: 2011Q1

REPORT INFORMATION
  Report Type: 
  Country: None (occurrence: None)
  Receive Date: 20110311
  Receipt Date: 20110304
  Transmission Date: 20110831
  Serious: Yes (Life-Threatening, Hospitalization, Disabling)
  Sender: FDA-Public Use
  Company Number: DE-BRISTOL-MYERS SQUIBB COMPANY-15574569

PATIENT
  Age: 49 Year
  Sex: Female
  Weight: 63 kg

DRUGS (3)
  1. FOLINIC ACID [Concomitant]
     Indication: BREAST CANCER
     Route: 042
     Dates: start: 20100901, end: 20110101
  2. MITOMYCIN [Suspect]
     Indication: BREAST CANCER
     Dosage: INJ
     Route: 065
     Dates: start: 20100901, end: 20110101
  3. 5-FU [Concomitant]
     Indication: BREAST CANCER
     Route: 042
     Dates: start: 20100901, end: 20110101

REACTIONS (1)
  - PULMONARY HYPERTENSION [None]
